FAERS Safety Report 20050346 (Version 1)
Quarter: 2021Q4

REPORT INFORMATION
  Report Type: Spontaneous
  Country: US (occurrence: US)
  Receive Date: 20211109
  Receipt Date: 20211109
  Transmission Date: 20220303
  Serious: Yes (Life-Threatening)
  Sender: FDA-Public Use
  Company Number: US-HISAMITSU-2021-US-023539

PATIENT
  Age: 66 Year
  Sex: Female
  Weight: 71.67 kg

DRUGS (6)
  1. SALONPAS PAIN RELIEVING [Suspect]
     Active Substance: CAMPHOR (SYNTHETIC)\MENTHOL\METHYL SALICYLATE
     Indication: Analgesic therapy
     Dosage: INTERMITTENT USE, 2-3 PATCHES ON BACK ON 19-OCT-2021
     Route: 061
     Dates: end: 20211019
  2. METOPROLOL [Concomitant]
     Active Substance: METOPROLOL
  3. LISINOPRIL [Concomitant]
     Active Substance: LISINOPRIL
  4. METHADONE [Concomitant]
     Active Substance: METHADONE HYDROCHLORIDE
  5. LINZESS [Concomitant]
     Active Substance: LINACLOTIDE
  6. PEPCID [Concomitant]
     Active Substance: FAMOTIDINE
     Dosage: AS NEEDED

REACTIONS (1)
  - Hypersensitivity [Recovered/Resolved]

NARRATIVE: CASE EVENT DATE: 20211019
